FAERS Safety Report 25237252 (Version 1)
Quarter: 2025Q2

REPORT INFORMATION
  Report Type: Spontaneous
  Country: FR (occurrence: FR)
  Receive Date: 20250425
  Receipt Date: 20250425
  Transmission Date: 20250717
  Serious: Yes (Hospitalization)
  Sender: ROCHE
  Company Number: FR-ROCHE-10000264267

PATIENT
  Age: 33 Year
  Sex: Male

DRUGS (8)
  1. CELLCEPT [Suspect]
     Active Substance: MYCOPHENOLATE MOFETIL
     Indication: Prophylaxis against transplant rejection
     Route: 065
  2. TACROLIMUS [Suspect]
     Active Substance: TACROLIMUS
     Indication: Prophylaxis against transplant rejection
     Route: 065
  3. COTRIMOXAZOLE [Concomitant]
     Active Substance: SULFAMETHOXAZOLE\TRIMETHOPRIM
  4. CEFUROXIME [Concomitant]
     Active Substance: CEFUROXIME
  5. clavulanic acid + amoxicillin [Concomitant]
  6. MEROPENEM [Concomitant]
     Active Substance: MEROPENEM
  7. AMIKACIN [Concomitant]
     Active Substance: AMIKACIN
  8. TEMOCILLIN [Concomitant]
     Active Substance: TEMOCILLIN

REACTIONS (3)
  - Lung abscess [Recovered/Resolved]
  - Osteitis [Recovered/Resolved]
  - Mediastinitis [Recovered/Resolved]
